FAERS Safety Report 5968794-1 (Version None)
Quarter: 2008Q4

REPORT INFORMATION
  Report Type: 
  Country: None (occurrence: None)
  Receive Date: 20081121
  Receipt Date: 20081121
  Transmission Date: 20090506
  Serious: No
  Sender: FDA-Public Use
  Company Number: None

PATIENT
  Age: 6 Year
  Sex: Male
  Weight: 26.3086 kg

DRUGS (1)
  1. KENALOG [Suspect]
     Indication: DYSPNOEA
     Dosage: 20 MG ONCE IM
     Route: 030
     Dates: start: 20080702, end: 20080702

REACTIONS (4)
  - INJECTION SITE DISCOLOURATION [None]
  - INJECTION SITE HAEMATOMA [None]
  - INJECTION SITE REACTION [None]
  - MUSCLE DISORDER [None]
